FAERS Safety Report 8594312 (Version 2)
Quarter: 2016Q1

REPORT INFORMATION
  Report Type: Report from Study
  Country: US (occurrence: US)
  Receive Date: 20120604
  Receipt Date: 20160315
  Transmission Date: 20160526
  Serious: Yes (Other)
  Sender: FDA-Public Use
  Company Number: US-ROCHE-1058040

PATIENT
  Age: 15 Year
  Sex: Male
  Weight: 62 kg

DRUGS (3)
  1. FLINTSTONES VITAMINS [Concomitant]
     Route: 048
  2. FINASTERIDE. [Concomitant]
     Active Substance: FINASTERIDE
  3. NUTROPIN AQ [Suspect]
     Active Substance: SOMATROPIN
     Indication: GROWTH RETARDATION
     Route: 058
     Dates: start: 20100209

REACTIONS (6)
  - Hypoacusis [Unknown]
  - Growth retardation [Unknown]
  - Accident [Unknown]
  - Contusion [Unknown]
  - Arthralgia [Unknown]
  - Sinusitis [Unknown]

NARRATIVE: CASE EVENT DATE: 20120204
